FAERS Safety Report 7676080-7 (Version None)
Quarter: 2011Q3

REPORT INFORMATION
  Report Type: 
  Country: None (occurrence: None)
  Receive Date: 20110811
  Receipt Date: 20110804
  Transmission Date: 20111222
  Serious: Yes (Hospitalization)
  Sender: FDA-Public Use
  Company Number: JP-BRISTOL-MYERS SQUIBB COMPANY-15935794

PATIENT
  Age: 76 Year
  Sex: Male

DRUGS (6)
  1. NEO-MERCAZOLE TAB [Concomitant]
     Indication: BASEDOW'S DISEASE
     Route: 048
     Dates: start: 20030926
  2. GARENOXACIN MESYLATE [Suspect]
     Indication: GASTROENTERITIS
     Route: 048
     Dates: start: 20110621, end: 20110625
  3. METHYCOBAL [Concomitant]
     Indication: CERVICAL SPINAL STENOSIS
     Route: 048
     Dates: start: 20110414, end: 20110617
  4. METFORMIN HCL [Concomitant]
     Indication: TYPE 2 DIABETES MELLITUS
     Route: 048
     Dates: start: 20091204
  5. OPALMON [Concomitant]
     Indication: CERVICAL SPINAL STENOSIS
     Route: 048
     Dates: start: 20110414, end: 20110617
  6. IRBESARTAN [Suspect]
     Indication: HYPERTENSION
     Route: 048
     Dates: start: 20100329, end: 20110626

REACTIONS (1)
  - HYPONATRAEMIA [None]
